FAERS Safety Report 19873619 (Version 1)
Quarter: 2021Q3

REPORT INFORMATION
  Report Type: Report from Study
  Country: KR (occurrence: KR)
  Receive Date: 20210922
  Receipt Date: 20210922
  Transmission Date: 20211014
  Serious: Yes (Other)
  Sender: FDA-Public Use
  Company Number: KR-ORGANON-1602KOR000370

PATIENT
  Age: 83 Year
  Sex: Male
  Weight: 87 kg

DRUGS (11)
  1. ATACAND [Concomitant]
     Active Substance: CANDESARTAN CILEXETIL
     Indication: ESSENTIAL HYPERTENSION
     Dosage: 16 MILLIGRAM, QD
     Route: 048
     Dates: start: 20090318
  2. EZETIMIBE (+) ATORVASTATIN [Suspect]
     Active Substance: ATORVASTATIN\EZETIMIBE
     Dosage: 1 TABLET (10/10MG), DAILY
     Route: 048
     Dates: start: 20150930
  3. LASIX [Concomitant]
     Active Substance: FUROSEMIDE
     Indication: PROPHYLAXIS
     Dosage: 20 MG, DAILY
     Route: 048
     Dates: start: 20121112
  4. ESOMEZOL [ESOMEPRAZOLE STRONTIUM] [Concomitant]
     Indication: PROPHYLAXIS AGAINST GASTROINTESTINAL ULCER
     Dosage: 20 MG, DAILY
     Route: 048
     Dates: start: 20160127, end: 20160621
  5. MUTERIN [Concomitant]
     Indication: PROPHYLAXIS
     Dosage: 200 MG, TWICE A DAY
     Route: 048
     Dates: start: 20091125
  6. TROMVIX [Concomitant]
     Indication: THROMBOSIS PROPHYLAXIS
     Dosage: 1 TABLET, DAILY
     Route: 048
     Dates: start: 20070612
  7. VASTINAN MR [Concomitant]
     Indication: CORONARY ARTERY DISEASE
     Dosage: 35 MG, TWICE A DAY
     Route: 048
     Dates: start: 20080910
  8. DIABEX [Concomitant]
     Active Substance: METFORMIN HYDROCHLORIDE
     Indication: TYPE 2 DIABETES MELLITUS
     Dosage: 500 MG, DAILY
     Route: 048
     Dates: start: 20120516
  9. DILATREND [Concomitant]
     Active Substance: CARVEDILOL
     Indication: ESSENTIAL HYPERTENSION
     Dosage: 12.5 MILLIGRAM, TWICE A DAY
     Route: 048
     Dates: start: 20061002
  10. ISOSORBIDE MONONITRATE. [Concomitant]
     Active Substance: ISOSORBIDE MONONITRATE
     Indication: CORONARY ARTERY DISEASE
     Dosage: 60 MG, DAILY
     Route: 048
     Dates: start: 20110818
  11. ACTOS [Concomitant]
     Active Substance: PIOGLITAZONE HYDROCHLORIDE
     Indication: TYPE 2 DIABETES MELLITUS
     Dosage: 15 MG, DAILY
     Route: 048
     Dates: start: 20120516

REACTIONS (6)
  - Chronic gastritis [Recovered/Resolved]
  - Dyspnoea exertional [Recovered/Resolved]
  - Gastric polyps [Recovered/Resolved]
  - Anaemia [Unknown]
  - Duodenitis [Recovered/Resolved]
  - Duodenal polyp [Recovered/Resolved]

NARRATIVE: CASE EVENT DATE: 201601
